FAERS Safety Report 8607969-X (Version None)
Quarter: 2012Q3

REPORT INFORMATION
  Report Type: 
  Country: None (occurrence: None)
  Receive Date: 20120821
  Receipt Date: 20120817
  Transmission Date: 20120928
  Serious: Yes (Death, Life-Threatening, Disabling, Other)
  Sender: FDA-Public Use
  Company Number: US-GENZYME-MOZO-1000728

PATIENT
  Sex: Female
  Weight: 25 kg

DRUGS (12)
  1. MOZOBIL [Suspect]
     Indication: ACUTE LYMPHOCYTIC LEUKAEMIA
     Dosage: 6 MG, QD
     Route: 042
     Dates: start: 20120616, end: 20120618
  2. CLOLAR [Suspect]
     Indication: ACUTE LYMPHOCYTIC LEUKAEMIA
     Dosage: 70 MG, QD
     Route: 042
     Dates: start: 20120110, end: 20120111
  3. MEROPENEM [Concomitant]
     Indication: ANTI-INFECTIVE THERAPY
     Dosage: 500 MG, UNK
     Route: 042
     Dates: start: 20120627, end: 20120704
  4. THYMOGLOBULIN [Suspect]
     Dosage: 254 MG, QD
     Route: 042
     Dates: start: 20120616, end: 20120619
  5. FENTANYL CITRATE [Concomitant]
     Indication: ANALGESIC THERAPY
     Dosage: 50 MCG, UNK
     Route: 042
     Dates: start: 20120627, end: 20120704
  6. CYTARABINE [Concomitant]
     Indication: ACUTE LYMPHOCYTIC LEUKAEMIA
     Dosage: UNK
     Dates: start: 20120111, end: 20120111
  7. THIOTEPA [Concomitant]
     Indication: ACUTE LYMPHOCYTIC LEUKAEMIA
     Dosage: 256 MG, Q12HR
     Route: 065
     Dates: start: 20120616, end: 20120617
  8. MELPHALAN HYDROCHLORIDE [Concomitant]
     Indication: ACUTE LYMPHOCYTIC LEUKAEMIA
     Dosage: 130 MG, QD
     Route: 042
     Dates: start: 20120617, end: 20120618
  9. FLUDARA [Suspect]
     Indication: ACUTE LYMPHOCYTIC LEUKAEMIA
     Dosage: 140 MG, QD
     Route: 042
     Dates: start: 20120611, end: 20120615
  10. THYMOGLOBULIN [Suspect]
     Indication: ACUTE LYMPHOCYTIC LEUKAEMIA
     Dosage: 229.9 MG, QD
     Route: 042
     Dates: start: 20120115, end: 20120118
  11. DILAUDID [Concomitant]
     Indication: ANALGESIC THERAPY
     Dosage: 1 MG, UNK
     Route: 042
     Dates: start: 20120627, end: 20120704
  12. BUSULFAN [Concomitant]
     Indication: ACUTE LYMPHOCYTIC LEUKAEMIA
     Dosage: UNK
     Route: 065
     Dates: start: 20120112, end: 20120114

REACTIONS (10)
  - CARDIAC FAILURE [None]
  - RENAL FAILURE [None]
  - HYPERTENSION [None]
  - SEPSIS [None]
  - PULMONARY ALVEOLAR HAEMORRHAGE [None]
  - PERICARDIAL EFFUSION [None]
  - RESPIRATORY FAILURE [None]
  - PLEURAL EFFUSION [None]
  - FUSARIUM INFECTION [None]
  - ISCHAEMIA [None]
